FAERS Safety Report 7536095-6 (Version None)
Quarter: 2011Q2

REPORT INFORMATION
  Report Type: 
  Country: None (occurrence: None)
  Receive Date: 20110602
  Receipt Date: 20110524
  Transmission Date: 20111010
  Serious: Yes (Hospitalization)
  Sender: FDA-Public Use
  Company Number: 930717

PATIENT
  Age: 8 Month
  Sex: Female
  Weight: 7.3 kg

DRUGS (18)
  1. DEXMEDETOMIDINE HYDROCHLORIDE [Suspect]
     Indication: SEDATION
     Dosage: 0.6 MCG/KG/H ON D-4, INTRAVENOUS DRIP; 0.66 MCG/KG/H ON D-3 TO D-2 INTRAVENOUS DRIP
     Route: 041
  2. DEXMEDETOMIDINE HYDROCHLORIDE [Suspect]
     Indication: SEDATION
     Dosage: 0.6 MCG/KG/H ON D-4, INTRAVENOUS DRIP; 0.66 MCG/KG/H ON D-3 TO D-2 INTRAVENOUS DRIP
     Route: 041
  3. ROCURONIUM BROMIDE [Concomitant]
  4. ACETAMINOPHEN [Concomitant]
  5. FUROSEMIDE [Concomitant]
  6. BENZTROPINE MESYLATE [Concomitant]
  7. FENTANYL CITRATE [Concomitant]
  8. KETAMINE HCL [Concomitant]
  9. HALOPERIDOL [Suspect]
     Indication: AGITATION
     Dosage: SEE IMAGE
     Route: 042
  10. HALOPERIDOL [Suspect]
     Indication: AGITATION
     Dosage: SEE IMAGE
     Route: 042
  11. HALOPERIDOL [Suspect]
     Indication: AGITATION
     Dosage: SEE IMAGE
     Route: 042
  12. MIDAZOLAM HCL [Concomitant]
  13. DIPHENHYDRAMINE HCL [Concomitant]
  14. METOCLOPRAMIDE [Suspect]
     Indication: GASTROOESOPHAGEAL REFLUX DISEASE
     Dosage: 0.8 MG TO 1 MG THREE OR FOUR TIMES DAILY ORAL; 1.3 MG 4 TIMES DAILY INTRAVENOUS
  15. (CHLORAL HYDRATE) [Suspect]
     Indication: PRODUCT USED FOR UNKNOWN INDICATION
     Dosage: 100 MG PO/IR 6 TIMES DAILY AS REQUIRED,
  16. HYDROMORPHONE HCL [Concomitant]
  17. OMEPRAZOLE [Concomitant]
  18. URSODIOL [Concomitant]

REACTIONS (4)
  - BRADYCARDIA [None]
  - ELECTROCARDIOGRAM QT PROLONGED [None]
  - OFF LABEL USE [None]
  - DRUG INTERACTION [None]
